FAERS Safety Report 24916395 (Version 1)
Quarter: 2025Q1

REPORT INFORMATION
  Report Type: Spontaneous
  Country: US (occurrence: None)
  Receive Date: 20250131
  Receipt Date: 20250131
  Transmission Date: 20250409
  Serious: Yes (Hospitalization)
  Sender: FDA-CTU
  Company Number: None

PATIENT
  Age: 72 Year
  Sex: Female
  Weight: 63 kg

DRUGS (1)
  1. ISOVUE 370 [Suspect]
     Active Substance: IOPAMIDOL
     Indication: Diagnostic procedure
     Route: 040
     Dates: start: 20241121, end: 20241121

REACTIONS (6)
  - Hemiparesis [None]
  - Dyskinesia [None]
  - Contrast media reaction [None]
  - Encephalopathy [None]
  - Apraxia [None]
  - Paraesthesia [None]

NARRATIVE: CASE EVENT DATE: 20241121
